FAERS Safety Report 10328575 (Version 1)
Quarter: 2014Q3

REPORT INFORMATION
  Report Type: Spontaneous
  Country: US (occurrence: US)
  Receive Date: 20140721
  Receipt Date: 20140721
  Transmission Date: 20150326
  Serious: No
  Sender: FDA-Public Use
  Company Number: US-ASTRAZENECA-2014SE50632

PATIENT
  Age: 60 Year
  Sex: Female

DRUGS (1)
  1. SYMBICORT [Suspect]
     Active Substance: BUDESONIDE\FORMOTEROL FUMARATE DIHYDRATE
     Dosage: 80/4.5 MCG, UNKNOWN
     Route: 055
     Dates: start: 201406, end: 201407

REACTIONS (3)
  - Cough [Unknown]
  - Drug intolerance [Unknown]
  - Headache [Unknown]
